FAERS Safety Report 14625057 (Version 1)
Quarter: 2018Q1

REPORT INFORMATION
  Report Type: Spontaneous
  Country: US (occurrence: US)
  Receive Date: 20180312
  Receipt Date: 20180312
  Transmission Date: 20180509
  Serious: Yes (Life-Threatening, Other)
  Sender: FDA-Public Use
  Company Number: US-BAYER-2018-044531

PATIENT
  Age: 87 Year
  Sex: Male

DRUGS (2)
  1. ACETYLSALICYLIC ACID({=100 MG) [Suspect]
     Active Substance: ASPIRIN
     Indication: ANTIPLATELET THERAPY
     Dosage: UNK
  2. CLOPIDOGREL [Interacting]
     Active Substance: CLOPIDOGREL BISULFATE
     Indication: ANTIPLATELET THERAPY
     Dosage: UNK

REACTIONS (7)
  - Gastritis bacterial [None]
  - Drug administration error [None]
  - Coronary artery disease [None]
  - Abdominal pain upper [None]
  - Haemoglobin decreased [None]
  - Haematemesis [None]
  - Labelled drug-drug interaction medication error [None]
